FAERS Safety Report 5309866-4 (Version None)
Quarter: 2007Q2

REPORT INFORMATION
  Report Type: 
  Country: None (occurrence: None)
  Receive Date: 20070427
  Receipt Date: 20070418
  Transmission Date: 20071010
  Serious: Yes (Disabling)
  Sender: FDA-Public Use
  Company Number: JP-ROCHE-491389

PATIENT
  Age: 13 Year
  Sex: Female
  Weight: 40 kg

DRUGS (2)
  1. TAMIFLU [Suspect]
     Route: 048
     Dates: start: 20070310, end: 20070310
  2. TAMIFLU [Suspect]
     Route: 048
     Dates: start: 20070311, end: 20070312

REACTIONS (1)
  - DEPRESSED LEVEL OF CONSCIOUSNESS [None]
